FAERS Safety Report 21681798 (Version 1)
Quarter: 2022Q4

REPORT INFORMATION
  Report Type: Spontaneous
  Country: US (occurrence: None)
  Receive Date: 20221202
  Receipt Date: 20221202
  Transmission Date: 20230113
  Serious: No
  Sender: FDA-Public Use
  Company Number: None

PATIENT
  Sex: Female

DRUGS (1)
  1. DUPIXENT [Suspect]
     Active Substance: DUPILUMAB
     Indication: Dermatitis atopic
     Dosage: OTHER QUANTITY : 600MG, 300MG;?OTHER FREQUENCY : 1D,15D, EOW;?600MG ON DAY 1, THEN 399MG ON DAY 15,
     Route: 058
     Dates: start: 202212

REACTIONS (4)
  - Injection site haemorrhage [None]
  - Incorrect dose administered by device [None]
  - Device malfunction [None]
  - Drug dose omission by device [None]
